FAERS Safety Report 16420270 (Version 2)
Quarter: 2019Q2

REPORT INFORMATION
  Report Type: Spontaneous
  Country: US (occurrence: US)
  Receive Date: 20190612
  Receipt Date: 20190617
  Transmission Date: 20190711
  Serious: No
  Sender: FDA-Public Use
  Company Number: US-PFIZER INC-2019243252

PATIENT
  Age: 67 Year
  Sex: Female

DRUGS (4)
  1. XANAX [Suspect]
     Active Substance: ALPRAZOLAM
     Dosage: UNK, 3X/DAY
     Dates: start: 2017
  2. XANAX [Suspect]
     Active Substance: ALPRAZOLAM
     Indication: STRESS
     Dosage: 0.5 MG, 4X/DAY(DOSE REDUCTION ON THE SECOND OR THIRD DAY)
     Dates: start: 1985, end: 1985
  3. XANAX [Suspect]
     Active Substance: ALPRAZOLAM
     Dosage: 0.5 MG, 4X/DAY
     Dates: start: 1985
  4. XANAX [Suspect]
     Active Substance: ALPRAZOLAM
     Dosage: 0.25 MG, 4X/DAY (DOSE REDUCTION BY HALF)
     Dates: start: 1985, end: 1985

REACTIONS (6)
  - Visual impairment [Unknown]
  - Drug ineffective [Unknown]
  - Paraesthesia [Unknown]
  - Blister [Unknown]
  - Depression [Unknown]
  - Pain [Unknown]
